FAERS Safety Report 17502637 (Version 1)
Quarter: 2020Q1

REPORT INFORMATION
  Report Type: Spontaneous
  Country: US (occurrence: US)
  Receive Date: 20200305
  Receipt Date: 20200305
  Transmission Date: 20200409
  Serious: Yes (Other)
  Sender: FDA-Public Use
  Company Number: US-PFIZER INC-2020097020

PATIENT
  Age: 74 Year
  Sex: Male

DRUGS (1)
  1. VYNDAMAX [Suspect]
     Active Substance: TAFAMIDIS
     Dosage: 61 MG, UNK

REACTIONS (10)
  - Anaemia [Unknown]
  - Fatigue [Unknown]
  - Skin weeping [Unknown]
  - Weight decreased [Unknown]
  - Brain natriuretic peptide increased [Unknown]
  - Heart sounds abnormal [Unknown]
  - Dry mouth [Unknown]
  - Oedema peripheral [Unknown]
  - Dyspnoea [Unknown]
  - Faeces discoloured [Unknown]

NARRATIVE: CASE EVENT DATE: 2019
